FAERS Safety Report 5286517-9 (Version None)
Quarter: 2007Q1

REPORT INFORMATION
  Report Type: 
  Country: None (occurrence: None)
  Receive Date: 20070104
  Receipt Date: 20060907
  Transmission Date: 20070707
  Serious: No
  Sender: FDA-Public Use
  Company Number: BDI-008620

PATIENT
  Age: 35 Year
  Sex: Female

DRUGS (1)
  1. MULTIHANCE [Suspect]
     Dosage: 20 ML ONCE IV
     Route: 042

REACTIONS (2)
  - ERYTHEMA [None]
  - URTICARIA [None]
